FAERS Safety Report 8981146 (Version 1)
Quarter: 2012Q4

REPORT INFORMATION
  Report Type: 
  Country: US (occurrence: US)
  Receive Date: 20121221
  Receipt Date: 20121221
  Transmission Date: 20130627
  Serious: Yes (Other)
  Sender: FDA-Public Use
  Company Number: US-VIIV HEALTHCARE LIMITED-A1005463A

PATIENT
  Age: 39 Year
  Sex: Female

DRUGS (5)
  1. COMBIVIR [Suspect]
     Indication: ANTIVIRAL TREATMENT
     Dosage: 2TAB per day
     Route: 048
     Dates: start: 20120924
  2. RETROVIR [Suspect]
     Indication: ANTIVIRAL TREATMENT
     Route: 042
     Dates: start: 20121121, end: 20121121
  3. KALETRA [Suspect]
     Indication: ANTIVIRAL TREATMENT
     Dosage: 4TAB per day
     Route: 048
     Dates: start: 20120924
  4. ISENTRESS [Suspect]
     Indication: ANTIVIRAL TREATMENT
     Dosage: 800MG per day
     Route: 048
     Dates: start: 20120924
  5. TRIMETHOPRIM + SULFAMETHOXAZOLE [Concomitant]
     Indication: PRODUCT USED FOR UNKNOWN INDICATION

REACTIONS (4)
  - Gestational diabetes [Unknown]
  - Cytomegalovirus infection [Unknown]
  - Live birth [Unknown]
  - Exposure during pregnancy [Unknown]
